FAERS Safety Report 9733228 (Version 4)
Quarter: 2014Q1

REPORT INFORMATION
  Report Type: Spontaneous
  Country: US (occurrence: US)
  Receive Date: 20131205
  Receipt Date: 20140102
  Transmission Date: 20141002
  Serious: No
  Sender: FDA-Public Use
  Company Number: US-PFIZER INC-2013348259

PATIENT
  Sex: Female

DRUGS (2)
  1. LYRICA [Suspect]
     Indication: NEUROPATHY PERIPHERAL
     Dosage: 45 MG, UNK
  2. LYRICA [Suspect]
     Dosage: 150 MG, 2X/DAY

REACTIONS (2)
  - Accident [Unknown]
  - Fall [Unknown]
